FAERS Safety Report 9146400 (Version 1)
Quarter: 2013Q1

REPORT INFORMATION
  Report Type: Report from Study
  Country: US (occurrence: US)
  Receive Date: 20130307
  Receipt Date: 20130307
  Transmission Date: 20140127
  Serious: Yes (Other)
  Sender: FDA-Public Use
  Company Number: US-ASTELLAS-2013US002457

PATIENT
  Age: 80 None
  Sex: Female
  Weight: 69 kg

DRUGS (1)
  1. ERLOTINIB TABLET [Suspect]
     Indication: SMALL CELL LUNG CANCER
     Dosage: 150 MG, UID/QD
     Route: 048
     Dates: start: 20130127

REACTIONS (5)
  - Visual impairment [Not Recovered/Not Resolved]
  - Musculoskeletal stiffness [Not Recovered/Not Resolved]
  - Blood potassium decreased [Unknown]
  - Heart rate increased [Recovered/Resolved]
  - Urinary tract infection [Recovering/Resolving]
